FAERS Safety Report 19727340 (Version 2)
Quarter: 2021Q4

REPORT INFORMATION
  Report Type: Report from Study
  Country: HN (occurrence: HN)
  Receive Date: 20210819
  Receipt Date: 20211019
  Transmission Date: 20220304
  Serious: Yes (Other)
  Sender: FDA-Public Use
  Company Number: NVSC2021HN113453

PATIENT
  Age: 68 Year
  Sex: Male

DRUGS (2)
  1. EXFORGE [Suspect]
     Active Substance: AMLODIPINE BESYLATE\VALSARTAN
     Indication: Hypertension
     Dosage: 1 DF
     Route: 065
  2. HYDROCHLOROTHIAZIDE\VALSARTAN [Suspect]
     Active Substance: HYDROCHLOROTHIAZIDE\VALSARTAN
     Indication: Hypertension
     Dosage: 1 DF (160/12.5 MG)
     Route: 065

REACTIONS (6)
  - Sudden hearing loss [Unknown]
  - Hypertension [Unknown]
  - Visual impairment [Unknown]
  - Product prescribing error [Unknown]
  - Incorrect dose administered [Unknown]
  - Drug ineffective [Unknown]
